FAERS Safety Report 23457911 (Version 3)
Quarter: 2024Q1

REPORT INFORMATION
  Report Type: Report from Study
  Country: BR (occurrence: BR)
  Receive Date: 20240130
  Receipt Date: 20240220
  Transmission Date: 20240409
  Serious: Yes (Hospitalization)
  Sender: FDA-Public Use
  Company Number: BR-002147023-NVSC2024BR018626

PATIENT
  Age: 81 Year
  Sex: Male
  Weight: 55 kg

DRUGS (1)
  1. ENTRESTO [Suspect]
     Active Substance: SACUBITRIL\VALSARTAN
     Indication: Cardiac failure
     Dosage: 100 MG, BID
     Route: 048
     Dates: start: 202312

REACTIONS (6)
  - Loss of consciousness [Recovering/Resolving]
  - Presyncope [Recovering/Resolving]
  - Fall [Unknown]
  - Dizziness [Unknown]
  - Hypotension [Unknown]
  - Wound [Unknown]

NARRATIVE: CASE EVENT DATE: 20240117
